FAERS Safety Report 7747744-1 (Version None)
Quarter: 2011Q3

REPORT INFORMATION
  Report Type: 
  Country: None (occurrence: None)
  Receive Date: 20110913
  Receipt Date: 20110906
  Transmission Date: 20111222
  Serious: Yes (Other)
  Sender: FDA-Public Use
  Company Number: CHPA2011US12012

PATIENT
  Age: 61 Year
  Sex: Female

DRUGS (7)
  1. PREVACID 24 HR [Suspect]
     Indication: FLATULENCE
     Dosage: 15 MG, QD
     Route: 048
     Dates: start: 20110101
  2. PREDNISONE [Concomitant]
     Dosage: 80MG, UNK
     Route: 048
  3. PREVACID 24 HR [Suspect]
     Indication: PROPHYLAXIS
  4. PREDNISONE [Concomitant]
     Dosage: SOMETIMES 10MG
     Route: 048
  5. ANAESTHETICS [Concomitant]
  6. PREVACID 24 HR [Suspect]
     Indication: DYSPEPSIA
  7. PREVACID 24 HR [Suspect]
     Indication: EATING DISORDER

REACTIONS (4)
  - OFF LABEL USE [None]
  - SURGERY [None]
  - GASTROINTESTINAL SURGERY [None]
  - INCORRECT DRUG ADMINISTRATION DURATION [None]
